FAERS Safety Report 25751834 (Version 1)
Quarter: 2025Q3

REPORT INFORMATION
  Report Type: Spontaneous
  Country: US (occurrence: US)
  Receive Date: 20250902
  Receipt Date: 20250902
  Transmission Date: 20251020
  Serious: Yes (Death)
  Sender: PFIZER
  Company Number: US-PFIZER INC-PV202500104868

PATIENT
  Age: 5 Day
  Sex: Female

DRUGS (1)
  1. METHYLPREDNISOLONE ACETATE [Suspect]
     Active Substance: METHYLPREDNISOLONE ACETATE
     Indication: Haemophagocytic lymphohistiocytosis

REACTIONS (2)
  - Drug ineffective for unapproved indication [Fatal]
  - Off label use [Unknown]
